FAERS Safety Report 8870142 (Version 1)
Quarter: 2012Q4

REPORT INFORMATION
  Report Type: Spontaneous
  Country: US (occurrence: None)
  Receive Date: 20121025
  Receipt Date: 20121025
  Transmission Date: 20130627
  Serious: No
  Sender: FDA-Public Use
  Company Number: None

PATIENT
  Age: 28 Year
  Sex: Female
  Weight: 131.8 kg

DRUGS (4)
  1. ENOXAPARIN [Suspect]
     Indication: DVT
     Route: 058
     Dates: start: 20120922, end: 20121018
  2. ENOXAPARIN [Suspect]
     Indication: PULMONARY EMBOLUS
     Route: 058
     Dates: start: 20120922, end: 20121018
  3. ENOXAPARIN [Suspect]
     Indication: DVT
  4. ENOXAPARIN [Suspect]
     Indication: PULMONARY EMBOLUS

REACTIONS (2)
  - Product substitution issue [None]
  - Syringe issue [None]
